FAERS Safety Report 8661618 (Version 2)
Quarter: 2012Q4

REPORT INFORMATION
  Report Type: 
  Country: CO (occurrence: CO)
  Receive Date: 20120712
  Receipt Date: 20121010
  Transmission Date: 20130627
  Serious: Yes (Other)
  Sender: FDA-Public Use
  Company Number: CO-PFIZER INC-2012161255

PATIENT
  Age: 71 Year
  Sex: Female

DRUGS (4)
  1. DETRUSITOL [Suspect]
     Indication: VASCULITIS
     Dosage: 2 mg, 1x/day
     Route: 048
     Dates: start: 201204
  2. DETRUSITOL [Suspect]
     Indication: POLLAKIURIA
  3. CILOSTAZOL [Concomitant]
     Indication: BLOOD PRESSURE
     Dosage: UNK
     Route: 048
     Dates: start: 1992
  4. TIROXINA [Concomitant]
     Indication: THYROID DISORDER
     Dosage: UNK
     Route: 048
     Dates: start: 2007

REACTIONS (1)
  - Pain in extremity [Not Recovered/Not Resolved]
